FAERS Safety Report 7832095-7 (Version None)
Quarter: 2011Q4

REPORT INFORMATION
  Report Type: 
  Country: None (occurrence: None)
  Receive Date: 20111022
  Receipt Date: 20111018
  Transmission Date: 20120403
  Serious: Yes (Death, Hospitalization)
  Sender: FDA-Public Use
  Company Number: GB-BAYER-2011-074158

PATIENT
  Age: 75 Year
  Sex: Male

DRUGS (3)
  1. ACETYLSALICYLIC ACID SRT [Suspect]
     Indication: ACUTE CORONARY SYNDROME
     Dosage: 300 MG, ONCE
     Route: 048
  2. CLOPIDOGREL [Suspect]
     Indication: ACUTE CORONARY SYNDROME
     Dosage: 600 MG, ONCE
     Route: 048
  3. FONDAPARINUX SODIUM [Suspect]
     Indication: ACUTE CORONARY SYNDROME
     Dosage: 2.5 MG, ONCE
     Route: 058

REACTIONS (2)
  - ISCHAEMIC STROKE [None]
  - CEREBRAL HAEMORRHAGE [None]
